FAERS Safety Report 13505604 (Version 1)
Quarter: 2017Q2

REPORT INFORMATION
  Report Type: Spontaneous
  Country: US (occurrence: US)
  Receive Date: 20170502
  Receipt Date: 20170502
  Transmission Date: 20170830
  Serious: No
  Sender: FDA-Public Use
  Company Number: US-ASTRAZENECA-2016SE82294

PATIENT
  Age: 22236 Day
  Sex: Female

DRUGS (16)
  1. LYRICA [Suspect]
     Active Substance: PREGABALIN
     Dosage: 50.0MG UNKNOWN
     Route: 065
  2. ZOLPIDEM [Concomitant]
     Active Substance: ZOLPIDEM\ZOLPIDEM TARTRATE
  3. CIPRO [Suspect]
     Active Substance: CIPROFLOXACIN HYDROCHLORIDE
     Route: 065
  4. GABAPENTIN. [Concomitant]
     Active Substance: GABAPENTIN
  5. SUCRALFATE. [Concomitant]
     Active Substance: SUCRALFATE
  6. VICTOZA [Concomitant]
     Active Substance: LIRAGLUTIDE
  7. XENICAL [Suspect]
     Active Substance: ORLISTAT
     Route: 065
  8. DULOXETINE. [Concomitant]
     Active Substance: DULOXETINE
  9. LORAZEPAM. [Concomitant]
     Active Substance: LORAZEPAM
  10. BUSPAR [Suspect]
     Active Substance: BUSPIRONE HYDROCHLORIDE
     Route: 065
  11. INVOKANA [Concomitant]
     Active Substance: CANAGLIFLOZIN
  12. ATORVASTATIN [Concomitant]
     Active Substance: ATORVASTATIN
  13. BYDUREON [Suspect]
     Active Substance: EXENATIDE
     Route: 065
  14. METFORMIN [Concomitant]
     Active Substance: METFORMIN HYDROCHLORIDE
  15. ATENOLOL. [Concomitant]
     Active Substance: ATENOLOL
  16. LEVOTHYROXINE. [Concomitant]
     Active Substance: LEVOTHYROXINE

REACTIONS (1)
  - Drug hypersensitivity [Unknown]

NARRATIVE: CASE EVENT DATE: 20160722
